FAERS Safety Report 9326163 (Version 1)
Quarter: 2013Q2

REPORT INFORMATION
  Report Type: Spontaneous
  Country: US (occurrence: None)
  Receive Date: 20130603
  Receipt Date: 20130603
  Transmission Date: 20140414
  Serious: Yes (Life-Threatening, Hospitalization)
  Sender: FDA-Public Use
  Company Number: None

PATIENT
  Age: 79 Year
  Sex: Male
  Weight: 92.3 kg

DRUGS (2)
  1. PACLITAXEL [Suspect]
     Indication: NEOPLASM MALIGNANT
     Dosage: 366 MG, OTHER, IV
     Route: 042
     Dates: start: 20130108
  2. CARBOPLATIN [Suspect]
     Indication: LUNG NEOPLASM MALIGNANT
     Dosage: 450 MG, OTHER, IV
     Route: 042
     Dates: start: 20130108

REACTIONS (4)
  - Pancytopenia [None]
  - Mucosal inflammation [None]
  - Productive cough [None]
  - Haematochezia [None]
